FAERS Safety Report 25335492 (Version 1)
Quarter: 2025Q2

REPORT INFORMATION
  Report Type: Spontaneous
  Country: CN (occurrence: CN)
  Receive Date: 20250520
  Receipt Date: 20250520
  Transmission Date: 20250717
  Serious: Yes (Other)
  Sender: BAXTER
  Company Number: None

PATIENT
  Age: 51 Year
  Sex: Female
  Weight: 60 kg

DRUGS (2)
  1. CYCLOPHOSPHAMIDE [Suspect]
     Active Substance: CYCLOPHOSPHAMIDE
     Indication: Breast cancer female
     Dosage: 0.9 G, QD, IVGTT D1
     Route: 041
     Dates: start: 20250428, end: 20250428
  2. DOCETAXEL [Suspect]
     Active Substance: DOCETAXEL
     Indication: Breast cancer female
     Dosage: 120 MG, QD, IVGTT D1
     Route: 041
     Dates: start: 20250428, end: 20250428

REACTIONS (6)
  - Depressed level of consciousness [Unknown]
  - Gastrointestinal disorder [Recovering/Resolving]
  - Discomfort [Unknown]
  - Palmar-plantar erythrodysaesthesia syndrome [Unknown]
  - Hypoaesthesia [Recovering/Resolving]
  - Nausea [Recovering/Resolving]

NARRATIVE: CASE EVENT DATE: 20250429
